FAERS Safety Report 11273347 (Version 1)
Quarter: 2015Q3

REPORT INFORMATION
  Report Type: Spontaneous
  Country: US (occurrence: None)
  Receive Date: 20150714
  Receipt Date: 20150714
  Transmission Date: 20151125
  Serious: Yes (Other)
  Sender: FDA-Public Use
  Company Number: None

PATIENT
  Age: 50 Year
  Sex: Female

DRUGS (1)
  1. MIRENA [Suspect]
     Active Substance: LEVONORGESTREL

REACTIONS (7)
  - Arthralgia [None]
  - Back pain [None]
  - Weight increased [None]
  - Vision blurred [None]
  - Palpitations [None]
  - Headache [None]
  - Paraesthesia [None]

NARRATIVE: CASE EVENT DATE: 20141001
